FAERS Safety Report 11511367 (Version 1)
Quarter: 2015Q3

REPORT INFORMATION
  Report Type: Spontaneous
  Country: US (occurrence: US)
  Receive Date: 20150915
  Receipt Date: 20150915
  Transmission Date: 20151125
  Serious: No
  Sender: FDA-Public Use
  Company Number: ALCN2015US005624

PATIENT
  Age: 61 Year
  Sex: Male

DRUGS (4)
  1. NATACYN [Suspect]
     Active Substance: NATAMYCIN
     Indication: EYE INFECTION
     Dosage: 1 GTT, Q2H
     Route: 047
     Dates: start: 20150901
  2. TOBRAMYCIN. [Concomitant]
     Active Substance: TOBRAMYCIN
     Indication: EYE INFECTION
     Dosage: UNK
     Route: 047
  3. NEOMYCIN POLYMIXIN [Concomitant]
     Indication: EYE INFECTION
     Dosage: UNK
     Route: 047
  4. VIGAMOX [Suspect]
     Active Substance: MOXIFLOXACIN HYDROCHLORIDE
     Indication: EYE INFECTION
     Dosage: UNK
     Route: 047

REACTIONS (2)
  - Medication residue present [Not Recovered/Not Resolved]
  - Ocular discomfort [Not Recovered/Not Resolved]
